FAERS Safety Report 16378862 (Version 1)
Quarter: 2019Q2

REPORT INFORMATION
  Report Type: Spontaneous
  Country: US (occurrence: US)
  Receive Date: 20190531
  Receipt Date: 20190531
  Transmission Date: 20190711
  Serious: Yes (Other)
  Sender: FDA-Public Use
  Company Number: US-SA-2019SA142463

PATIENT
  Age: 61 Year
  Sex: Female
  Weight: 92.98 kg

DRUGS (32)
  1. TENORMIN [Concomitant]
     Active Substance: ATENOLOL
     Dosage: UNK
     Dates: start: 20040110
  2. VALIUM [Concomitant]
     Active Substance: DIAZEPAM
  3. AMOXICILLIN. [Concomitant]
     Active Substance: AMOXICILLIN
  4. TRAMADOL HCL [Concomitant]
     Active Substance: TRAMADOL HYDROCHLORIDE
  5. ATENOLOL. [Concomitant]
     Active Substance: ATENOLOL
  6. NEURONTIN [Concomitant]
     Active Substance: GABAPENTIN
  7. PERCOCET [Concomitant]
     Active Substance: ACETAMINOPHEN\OXYCODONE HYDROCHLORIDE
  8. ZOFRAN [Concomitant]
     Active Substance: ONDANSETRON HYDROCHLORIDE
  9. SODIUM CHLORIDE. [Concomitant]
     Active Substance: SODIUM CHLORIDE
  10. ETOPOSIDE. [Concomitant]
     Active Substance: ETOPOSIDE
  11. PARAPLATIN [Concomitant]
     Active Substance: CARBOPLATIN
  12. ANASTROZOLE. [Concomitant]
     Active Substance: ANASTROZOLE
  13. TAXOTERE [Suspect]
     Active Substance: DOCETAXEL
     Dosage: 162 MG., 129.6 MG.
     Route: 042
     Dates: start: 20140416, end: 20140416
  14. PREDNISONE. [Concomitant]
     Active Substance: PREDNISONE
  15. BARIUM SULFATE [Concomitant]
     Active Substance: BARIUM SULFATE
  16. TAXOTERE [Suspect]
     Active Substance: DOCETAXEL
     Indication: FALLOPIAN TUBE CANCER
     Dosage: 162 MG., 129.6 MG.
     Route: 042
     Dates: start: 20130510, end: 20130510
  17. MAXZIDE [Concomitant]
     Active Substance: HYDROCHLOROTHIAZIDE\TRIAMTERENE
  18. COMPAZINE [Concomitant]
     Active Substance: PROCHLORPERAZINE MALEATE
  19. AMBIEN [Concomitant]
     Active Substance: ZOLPIDEM TARTRATE
  20. ATARAX [Concomitant]
     Active Substance: HYDROXYZINE HYDROCHLORIDE
  21. VICODIN [Concomitant]
     Active Substance: ACETAMINOPHEN\HYDROCODONE BITARTRATE
  22. FILGRASTIM [Concomitant]
     Active Substance: FILGRASTIM
  23. ETOPOPHOS [Concomitant]
     Active Substance: ETOPOSIDE PHOSPHATE
  24. DEXAMETHASONE. [Concomitant]
     Active Substance: DEXAMETHASONE
  25. NORVASC [Concomitant]
     Active Substance: AMLODIPINE BESYLATE
  26. CARBOPLATIN. [Concomitant]
     Active Substance: CARBOPLATIN
  27. GEMZAR [Concomitant]
     Active Substance: GEMCITABINE HYDROCHLORIDE
  28. HYCAMTIN [Concomitant]
     Active Substance: TOPOTECAN HYDROCHLORIDE
  29. NAPROXEN. [Concomitant]
     Active Substance: NAPROXEN
  30. ADRIAMYCIN [Concomitant]
     Active Substance: DOXORUBICIN HYDROCHLORIDE
  31. TAXOL [Concomitant]
     Active Substance: PACLITAXEL
  32. OMEPRAZOLE. [Concomitant]
     Active Substance: OMEPRAZOLE

REACTIONS (1)
  - Alopecia [Not Recovered/Not Resolved]

NARRATIVE: CASE EVENT DATE: 20141016
